FAERS Safety Report 10016420 (Version 1)
Quarter: 2014Q1

REPORT INFORMATION
  Report Type: Spontaneous
  Country: US (occurrence: US)
  Receive Date: 20140317
  Receipt Date: 20140317
  Transmission Date: 20141002
  Serious: No
  Sender: FDA-Public Use
  Company Number: US-LUNDBECK-DKLU1097624

PATIENT
  Sex: Female

DRUGS (3)
  1. ONFI [Suspect]
     Indication: EPILEPSY
     Dates: start: 20120112
  2. ONFI [Suspect]
  3. DEPAKOTE [Concomitant]
     Indication: PRODUCT USED FOR UNKNOWN INDICATION

REACTIONS (1)
  - Dysuria [Unknown]
